FAERS Safety Report 20476955 (Version 2)
Quarter: 2022Q2

REPORT INFORMATION
  Report Type: Spontaneous
  Country: US (occurrence: US)
  Receive Date: 20220215
  Receipt Date: 20220608
  Transmission Date: 20220720
  Serious: Yes (Hospitalization, Other)
  Sender: FDA-Public Use
  Company Number: US-GILEAD-2022-0569020

PATIENT
  Age: 67 Year
  Sex: Female
  Weight: 66.667 kg

DRUGS (20)
  1. TRUVADA [Suspect]
     Active Substance: EMTRICITABINE\TENOFOVIR DISOPROXIL FUMARATE
     Indication: HIV infection
     Dosage: UNK
     Route: 048
     Dates: start: 2004
  2. TRUVADA [Suspect]
     Active Substance: EMTRICITABINE\TENOFOVIR DISOPROXIL FUMARATE
     Dosage: UNK
     Route: 065
     Dates: start: 2006, end: 201109
  3. TRUVADA [Suspect]
     Active Substance: EMTRICITABINE\TENOFOVIR DISOPROXIL FUMARATE
     Dosage: UNK
     Route: 065
     Dates: start: 201310, end: 201511
  4. CHOLECALCIFEROL [Concomitant]
     Active Substance: CHOLECALCIFEROL
  5. ISENTRESS [Concomitant]
     Active Substance: RALTEGRAVIR POTASSIUM
  6. NORVIR [Concomitant]
     Active Substance: RITONAVIR
  7. PREZCOBIX [Concomitant]
     Active Substance: COBICISTAT\DARUNAVIR ETHANOLATE
  8. REYATAZ [Concomitant]
     Active Substance: ATAZANAVIR SULFATE
  9. TIVICAY [Concomitant]
     Active Substance: DOLUTEGRAVIR SODIUM
  10. ZIAGEN [Concomitant]
     Active Substance: ABACAVIR SULFATE
  11. AMLODIPINE [Concomitant]
     Active Substance: AMLODIPINE BESYLATE
  12. ASPIRIN [Concomitant]
     Active Substance: ASPIRIN
  13. AZT [Concomitant]
     Active Substance: ZIDOVUDINE
  14. ENSURE [Concomitant]
     Active Substance: AMINO ACIDS\DEXTROSE\ELECTROLYTES NOS\SOYBEAN OIL\VITAMINS
  15. FENOFIBRATE [Concomitant]
     Active Substance: FENOFIBRATE
  16. LOSARTAN [Concomitant]
     Active Substance: LOSARTAN
  17. METOPROLOL [Concomitant]
     Active Substance: METOPROLOL
  18. NICOTINE [Concomitant]
     Active Substance: NICOTINE
  19. PRAVASTATIN [Concomitant]
     Active Substance: PRAVASTATIN
  20. FISH OIL [Concomitant]
     Active Substance: FISH OIL

REACTIONS (14)
  - Osteoporosis [Not Recovered/Not Resolved]
  - Chronic kidney disease [Not Recovered/Not Resolved]
  - Renal impairment [Unknown]
  - Upper limb fracture [Not Recovered/Not Resolved]
  - Acute kidney injury [Not Recovered/Not Resolved]
  - Renal failure [Unknown]
  - Bone demineralisation [Unknown]
  - Pain [Not Recovered/Not Resolved]
  - Emotional distress [Not Recovered/Not Resolved]
  - Anxiety [Not Recovered/Not Resolved]
  - Anhedonia [Not Recovered/Not Resolved]
  - Osteopenia [Not Recovered/Not Resolved]
  - Tibia fracture [Not Recovered/Not Resolved]
  - Blood creatinine increased [Unknown]

NARRATIVE: CASE EVENT DATE: 20090601
